FAERS Safety Report 4949375-5 (Version None)
Quarter: 2006Q1

REPORT INFORMATION
  Report Type: 
  Country: None (occurrence: None)
  Receive Date: 20060315
  Receipt Date: 20060223
  Transmission Date: 20060701
  Serious: Yes (Other)
  Sender: FDA-Public Use
  Company Number: US_0510122996

PATIENT
  Age: 67 Year
  Sex: Female
  Weight: 99.8 kg

DRUGS (6)
  1. ZYPREXA [Suspect]
     Indication: BIPOLAR DISORDER
     Dosage: SEE IMAGE
     Route: 048
     Dates: start: 20020201, end: 20020305
  2. ZYPREXA [Suspect]
     Indication: BIPOLAR DISORDER
     Dosage: SEE IMAGE
     Route: 048
     Dates: start: 20000328, end: 20020930
  3. WELLBUTRIN (BUPROPION HYDROCHLORIDE) ORAL DRUG [Concomitant]
  4. ALPRAZOLAM [Concomitant]
  5. PAXIL [Concomitant]
  6. SINEMET /NET/ (CARBIDOPA, LEVODOPA) [Concomitant]

REACTIONS (37)
  - ABDOMINAL PAIN [None]
  - ABDOMINAL PAIN LOWER [None]
  - ALCOHOL POISONING [None]
  - ALCOHOLISM [None]
  - ARTERIOSCLEROSIS [None]
  - BLOOD CHOLESTEROL INCREASED [None]
  - BLOOD CREATINE PHOSPHOKINASE INCREASED [None]
  - BLOOD CREATINE PHOSPHOKINASE MB INCREASED [None]
  - BLOOD GLUCOSE INCREASED [None]
  - BLOOD TRIGLYCERIDES INCREASED [None]
  - BRONCHITIS [None]
  - CHOLECYSTITIS ACUTE [None]
  - CHRONIC OBSTRUCTIVE PULMONARY DISEASE [None]
  - CONDITION AGGRAVATED [None]
  - CONVULSION [None]
  - DIABETES MELLITUS NON-INSULIN-DEPENDENT [None]
  - DIABETIC NEUROPATHY [None]
  - DRUG LEVEL ABOVE THERAPEUTIC [None]
  - DRUG SCREEN POSITIVE [None]
  - DRUG TOXICITY [None]
  - DYSKINESIA [None]
  - FLUID RETENTION [None]
  - GLYCOSYLATED HAEMOGLOBIN INCREASED [None]
  - HYPERLIPIDAEMIA [None]
  - HYPERTENSION [None]
  - LOW DENSITY LIPOPROTEIN INCREASED [None]
  - NAUSEA [None]
  - NEUROPATHY PERIPHERAL [None]
  - OPISTHOTONUS [None]
  - OVERDOSE [None]
  - PARKINSON'S DISEASE [None]
  - PROCEDURAL PAIN [None]
  - TOTAL CHOLESTEROL/HDL RATIO DECREASED [None]
  - TREATMENT NONCOMPLIANCE [None]
  - TREMOR [None]
  - VOMITING [None]
  - WEIGHT INCREASED [None]
